FAERS Safety Report 9376611 (Version 2)
Quarter: 2016Q2

REPORT INFORMATION
  Report Type: Spontaneous
  Country: CA (occurrence: CA)
  Receive Date: 20130701
  Receipt Date: 20160414
  Transmission Date: 20160815
  Serious: Yes (Other)
  Sender: FDA-Public Use
  Company Number: CA-AMGEN-CANSP2013045643

PATIENT
  Age: 55 Year
  Sex: Female

DRUGS (7)
  1. TRASTUZUMAB [Suspect]
     Active Substance: TRASTUZUMAB
     Indication: INVASIVE BREAST CARCINOMA
     Dosage: 8MG/KG OVER 90 MINUTES ON DAY 1, CYCLE 1. (8 MG/KG, 1 IN 1 TOTAL)
     Route: 042
     Dates: start: 20130125
  2. DOCETAXEL. [Suspect]
     Active Substance: DOCETAXEL
     Dosage: 60 MG/M2,1 IN 21 D
     Route: 042
  3. TRASTUZUMAB [Suspect]
     Active Substance: TRASTUZUMAB
     Dosage: 6MG/KG OVER 30-60 MINUTES ON DAY 1, CYCLES 2-6.
     Route: 042
     Dates: start: 20130308, end: 20130308
  4. CYCLOPHOSPHAMIDE. [Suspect]
     Active Substance: CYCLOPHOSPHAMIDE
     Dosage: (500 MG/M2 ,1 IN 21 D)
     Route: 042
  5. NEULASTA [Suspect]
     Active Substance: PEGFILGRASTIM
     Indication: PRODUCT USED FOR UNKNOWN INDICATION
     Dosage: UNK
     Route: 058
  6. DOCETAXEL. [Suspect]
     Active Substance: DOCETAXEL
     Indication: INVASIVE BREAST CARCINOMA
     Dosage: 75 MG/M2, OVER 60 MINUTES ON DAY 1 FOR 6 CYCLES.
     Route: 042
     Dates: start: 20130125, end: 20130308
  7. CYCLOPHOSPHAMIDE. [Suspect]
     Active Substance: CYCLOPHOSPHAMIDE
     Indication: INVASIVE BREAST CARCINOMA
     Dosage: 600MG/M2 OVER 30 MINUTES ON DAY I FOR 6 CYCLES.
     Route: 042
     Dates: start: 20130125, end: 20130308

REACTIONS (1)
  - Pneumonitis [Recovered/Resolved]

NARRATIVE: CASE EVENT DATE: 20130327
